FAERS Safety Report 6644755-4 (Version None)
Quarter: 2010Q1

REPORT INFORMATION
  Report Type: 
  Country: None (occurrence: None)
  Receive Date: 20100305
  Receipt Date: 20100219
  Transmission Date: 20100710
  Serious: No
  Sender: FDA-Public Use
  Company Number: 2010-00271

PATIENT
  Age: 50 Year
  Sex: Female

DRUGS (4)
  1. ZICAM COLD REMEDY NASAL GEL [Suspect]
  2. LANTUS [Concomitant]
  3. LEXAPRO [Concomitant]
  4. LISINOPRIL [Concomitant]

REACTIONS (1)
  - ANOSMIA [None]
